FAERS Safety Report 11022145 (Version 1)
Quarter: 2015Q2

REPORT INFORMATION
  Report Type: Report from Study
  Country: US (occurrence: US)
  Receive Date: 20150413
  Receipt Date: 20150413
  Transmission Date: 20150821
  Serious: Yes (Hospitalization, Other)
  Sender: FDA-Public Use
  Company Number: US-GLAXOSMITHKLINE-US2015GSK046151

PATIENT
  Age: 83 Year
  Sex: Female
  Weight: 48.6 kg

DRUGS (11)
  1. ASPIRIN. [Concomitant]
     Active Substance: ASPIRIN
  2. BENADRYL [Concomitant]
     Active Substance: DIPHENHYDRAMINE HYDROCHLORIDE
  3. SENOKOT [Concomitant]
     Active Substance: SENNOSIDES
  4. VITAMIN B12 [Concomitant]
     Active Substance: CYANOCOBALAMIN
  5. LISINOPRIL. [Concomitant]
     Active Substance: LISINOPRIL
  6. LIDODERM [Concomitant]
     Active Substance: LIDOCAINE
  7. NABUMETONE. [Concomitant]
     Active Substance: NABUMETONE
  8. CALCIUM PLUS VITAMIN D [Concomitant]
     Active Substance: CALCIUM\VITAMIN D
  9. PAZOPANIB [Suspect]
     Active Substance: PAZOPANIB
     Indication: CARCINOID TUMOUR PULMONARY
     Dosage: 800 MG, QD
     Route: 048
     Dates: start: 20141205, end: 20141216
  10. VICODIN [Concomitant]
     Active Substance: ACETAMINOPHEN\HYDROCODONE BITARTRATE
  11. PREDNISONE. [Concomitant]
     Active Substance: PREDNISONE

REACTIONS (2)
  - Seizure [Recovering/Resolving]
  - Hypertension [Recovering/Resolving]

NARRATIVE: CASE EVENT DATE: 20141217
